FAERS Safety Report 9149037 (Version 1)
Quarter: 2013Q1

REPORT INFORMATION
  Report Type: Spontaneous
  Country: US (occurrence: None)
  Receive Date: 20130228
  Receipt Date: 20130228
  Transmission Date: 20140127
  Serious: No
  Sender: FDA-Public Use
  Company Number: None

PATIENT
  Age: 39 Year
  Sex: Male

DRUGS (1)
  1. AVONEX [Suspect]
     Indication: MULTIPLE SCLEROSIS
     Dosage: INJECTABLE  WEEKLY  INTRAMUSCULAR 030  ?DATES OF USE: FRIDAYS
     Route: 030

REACTIONS (2)
  - Abdominal pain [None]
  - Diarrhoea [None]
